FAERS Safety Report 11843679 (Version 1)
Quarter: 2015Q4

REPORT INFORMATION
  Report Type: Spontaneous
  Country: GB (occurrence: GB)
  Receive Date: 20151217
  Receipt Date: 20151217
  Transmission Date: 20160305
  Serious: Yes (Hospitalization, Other)
  Sender: FDA-Public Use
  Company Number: GB-ACCORD-036180

PATIENT
  Age: 59 Year
  Sex: Male
  Weight: 123 kg

DRUGS (2)
  1. OMEPRAZOLE. [Concomitant]
     Active Substance: OMEPRAZOLE
  2. CAPECITABINE. [Suspect]
     Active Substance: CAPECITABINE
     Indication: COLORECTAL CANCER
     Route: 048
     Dates: start: 20151116

REACTIONS (2)
  - Arteriospasm coronary [Recovering/Resolving]
  - Atrial flutter [Recovering/Resolving]

NARRATIVE: CASE EVENT DATE: 20151120
